FAERS Safety Report 5190087-3 (Version None)
Quarter: 2006Q4

REPORT INFORMATION
  Report Type: 
  Country: None (occurrence: None)
  Receive Date: 20061222
  Receipt Date: 20061215
  Transmission Date: 20070319
  Serious: Yes (Other)
  Sender: FDA-Public Use
  Company Number: JP-JNJFOC-20061104309

PATIENT
  Sex: Female

DRUGS (1)
  1. ITRIZOLE [Suspect]
     Indication: GLOSSODYNIA
     Route: 048
     Dates: start: 20061110, end: 20061112

REACTIONS (3)
  - CANDIDIASIS [None]
  - LICHEN PLANUS [None]
  - ORAL MUCOSAL EXFOLIATION [None]
